FAERS Safety Report 16994366 (Version 1)
Quarter: 2019Q4

REPORT INFORMATION
  Report Type: Spontaneous
  Country: US (occurrence: US)
  Receive Date: 20191105
  Receipt Date: 20191105
  Transmission Date: 20200122
  Serious: No
  Sender: FDA-Public Use
  Company Number: US-DRREDDYS-USA/USA/19/0115511

PATIENT
  Sex: Male
  Weight: 69.75 kg

DRUGS (2)
  1. GABAPENTIN. [Concomitant]
     Active Substance: GABAPENTIN
     Indication: PRODUCT USED FOR UNKNOWN INDICATION
  2. HABITROL [Suspect]
     Active Substance: NICOTINE
     Indication: TOBACCO USER
     Route: 062

REACTIONS (4)
  - Product quality issue [Unknown]
  - Abnormal dreams [Unknown]
  - Drug ineffective [Unknown]
  - Product use issue [Unknown]
